FAERS Safety Report 7946913-5 (Version None)
Quarter: 2011Q4

REPORT INFORMATION
  Report Type: 
  Country: None (occurrence: None)
  Receive Date: 20111129
  Receipt Date: 20111125
  Transmission Date: 20120403
  Serious: Yes (Other)
  Sender: FDA-Public Use
  Company Number: US-PFIZER INC-2010060987

PATIENT
  Sex: Male

DRUGS (1)
  1. NICOTROL [Suspect]
     Dosage: UNK

REACTIONS (6)
  - FRACTURE [None]
  - VIRAL INFECTION [None]
  - DYSPEPSIA [None]
  - SPINAL FRACTURE [None]
  - ACCIDENT [None]
  - NERVE INJURY [None]
